FAERS Safety Report 15306981 (Version 4)
Quarter: 2019Q4

REPORT INFORMATION
  Report Type: Spontaneous
  Country: CA (occurrence: CA)
  Receive Date: 20180822
  Receipt Date: 20191003
  Transmission Date: 20200122
  Serious: Yes (Hospitalization, Disabling, Other)
  Sender: FDA-Public Use
  Company Number: CA-ABBVIE-18K-028-2455809-00

PATIENT
  Sex: Female

DRUGS (4)
  1. AZATHIOPRINE. [Suspect]
     Active Substance: AZATHIOPRINE
     Indication: CROHN^S DISEASE
     Dosage: 2 MONTHS DURATION
     Route: 065
     Dates: start: 2016
  2. HUMIRA [Suspect]
     Active Substance: ADALIMUMAB
     Indication: CROHN^S DISEASE
     Route: 058
     Dates: start: 2016, end: 201711
  3. DESOXIMETASONE. [Suspect]
     Active Substance: DESOXIMETASONE
     Indication: PRODUCT USED FOR UNKNOWN INDICATION
     Route: 065
  4. CORTISONE [Suspect]
     Active Substance: CORTISONE
     Indication: PRODUCT USED FOR UNKNOWN INDICATION
     Route: 065

REACTIONS (18)
  - Rectal haemorrhage [Unknown]
  - Exposure during pregnancy [Unknown]
  - Constipation [Unknown]
  - Drug ineffective [Unknown]
  - Drug intolerance [Unknown]
  - Abdominal distension [Unknown]
  - Intestinal obstruction [Unknown]
  - Rectal discharge [Unknown]
  - Anxiety [Unknown]
  - Arthralgia [Unknown]
  - Abdominal distension [Unknown]
  - Crohn^s disease [Unknown]
  - Crohn^s disease [Unknown]
  - Live birth [Unknown]
  - Intestinal obstruction [Unknown]
  - Gastrointestinal fistula [Unknown]
  - Anal abscess [Unknown]
  - Urinary tract infection [Unknown]

NARRATIVE: CASE EVENT DATE: 201807
